FAERS Safety Report 17953226 (Version 1)
Quarter: 2020Q2

REPORT INFORMATION
  Report Type: Spontaneous
  Country: CN (occurrence: CN)
  Receive Date: 20200627
  Receipt Date: 20200627
  Transmission Date: 20200714
  Serious: Yes (Death)
  Sender: FDA-Public Use
  Company Number: NVSC2020CN177781

PATIENT
  Age: 19 Month
  Sex: Female

DRUGS (2)
  1. METHYLPREDNISOLONE. [Suspect]
     Active Substance: METHYLPREDNISOLONE
     Indication: SKIN NECROSIS
     Dosage: UNK
     Route: 065
  2. DEXAMETHASONE PALMITATE [Suspect]
     Active Substance: DEXAMETHASONE
     Indication: SKIN NECROSIS
     Dosage: UNK
     Route: 065

REACTIONS (4)
  - Disease progression [Fatal]
  - Skin necrosis [Fatal]
  - Sepsis [Fatal]
  - Product use in unapproved indication [Unknown]
